FAERS Safety Report 25091870 (Version 2)
Quarter: 2025Q2

REPORT INFORMATION
  Report Type: Report from Study
  Country: IT (occurrence: IT)
  Receive Date: 20250318
  Receipt Date: 20250526
  Transmission Date: 20250717
  Serious: Yes (Other)
  Sender: JOHNSON AND JOHNSON
  Company Number: IT-JNJFOC-20250350441

PATIENT
  Age: 65 Year
  Sex: Female
  Weight: 67 kg

DRUGS (7)
  1. YONDELIS [Suspect]
     Active Substance: TRABECTEDIN
     Indication: Leiomyosarcoma
     Route: 042
     Dates: start: 20240702
  2. YONDELIS [Suspect]
     Active Substance: TRABECTEDIN
     Route: 042
     Dates: start: 20240814
  3. YONDELIS [Suspect]
     Active Substance: TRABECTEDIN
     Route: 042
     Dates: start: 20240912
  4. AMLODIPINE\OLMESARTAN [Concomitant]
     Active Substance: AMLODIPINE\OLMESARTAN
     Indication: Product used for unknown indication
  5. CANRENOIC ACID [Concomitant]
     Active Substance: CANRENOIC ACID
     Indication: Product used for unknown indication
  6. POTASSIUM CHLORIDE [Concomitant]
     Active Substance: POTASSIUM CHLORIDE
     Indication: Product used for unknown indication
  7. DEXAMETHASONE [Concomitant]
     Active Substance: DEXAMETHASONE
     Indication: Product used for unknown indication
     Route: 048

REACTIONS (2)
  - Leukopenia [Recovered/Resolved]
  - Neutropenia [Recovered/Resolved]

NARRATIVE: CASE EVENT DATE: 20240905
